FAERS Safety Report 13035711 (Version 2)
Quarter: 2017Q1

REPORT INFORMATION
  Report Type: Spontaneous
  Country: JP (occurrence: JP)
  Receive Date: 20161216
  Receipt Date: 20170131
  Transmission Date: 20170428
  Serious: Yes (Other)
  Sender: FDA-Public Use
  Company Number: JP-TEVA-2016-JP-002924J

PATIENT
  Age: 32 Year
  Sex: Male
  Weight: 57 kg

DRUGS (15)
  1. TARGOCID [Suspect]
     Active Substance: TEICOPLANIN
     Indication: CELLULITIS
     Dosage: 400 MILLIGRAM DAILY;
     Route: 041
     Dates: start: 20161021, end: 20161021
  2. ITRIZOLE [Concomitant]
     Active Substance: ITRACONAZOLE
     Route: 048
  3. CARBENIN [Suspect]
     Active Substance: BETAMIPRON\PANIPENEM
     Indication: CELLULITIS
     Dosage: .5 GRAM DAILY;
     Route: 041
     Dates: start: 20161021, end: 20161021
  4. FOSRENOL [Concomitant]
     Active Substance: LANTHANUM CARBONATE
     Route: 048
  5. TARGOCID [Suspect]
     Active Substance: TEICOPLANIN
     Dosage: 800 MILLIGRAM DAILY;
     Route: 041
     Dates: start: 20161020, end: 20161020
  6. REGPARA [Concomitant]
     Active Substance: CINACALCET HYDROCHLORIDE
     Route: 048
  7. PRECIPITATED CALCIUM CARBONATE [Concomitant]
     Active Substance: CALCIUM CARBONATE
     Route: 048
  8. CLINDAMYCIN INJECTION 600MG TAIYO [Suspect]
     Active Substance: CLINDAMYCIN PHOSPHATE
     Indication: CELLULITIS
     Dosage: 600 MILLIGRAM DAILY;
     Route: 041
     Dates: start: 20161021, end: 20161022
  9. ARTIST [Concomitant]
     Active Substance: CARVEDILOL
     Route: 048
  10. BAYASPIRIN [Concomitant]
     Active Substance: ASPIRIN
     Route: 048
  11. PRIMPERAN [Concomitant]
     Active Substance: METOCLOPRAMIDE HYDROCHLORIDE
     Route: 065
  12. CANDESARTAN [Concomitant]
     Active Substance: CANDESARTAN
     Route: 048
  13. BAKTAR [Concomitant]
     Active Substance: SULFAMETHOXAZOLE\TRIMETHOPRIM
     Route: 048
  14. ALLOPURINOL. [Concomitant]
     Active Substance: ALLOPURINOL
     Route: 048
  15. HEPARIN [Concomitant]
     Active Substance: HEPARIN SODIUM
     Route: 041

REACTIONS (3)
  - Hepatic function abnormal [Recovered/Resolved]
  - Alanine aminotransferase increased [Recovered/Resolved]
  - Aspartate aminotransferase increased [Recovered/Resolved]

NARRATIVE: CASE EVENT DATE: 20161022
